FAERS Safety Report 8482560-7 (Version None)
Quarter: 2012Q3

REPORT INFORMATION
  Report Type: 
  Country: None (occurrence: None)
  Receive Date: 20120702
  Receipt Date: 20120622
  Transmission Date: 20120928
  Serious: Yes (Hospitalization)
  Sender: FDA-Public Use
  Company Number: GB-ABBOTT-12P-167-0948978-00

PATIENT
  Sex: Male

DRUGS (1)
  1. HUMIRA [Suspect]
     Indication: PSORIATIC ARTHROPATHY
     Route: 058
     Dates: start: 20120622

REACTIONS (6)
  - PARAESTHESIA ORAL [None]
  - DYSPNOEA [None]
  - FEELING ABNORMAL [None]
  - DIZZINESS [None]
  - MYOCARDIAL INFARCTION [None]
  - PARAESTHESIA [None]
